FAERS Safety Report 6039046-9 (Version None)
Quarter: 2009Q1

REPORT INFORMATION
  Report Type: 
  Country: None (occurrence: None)
  Receive Date: 20090115
  Receipt Date: 20090106
  Transmission Date: 20090719
  Serious: Yes (Other)
  Sender: FDA-Public Use
  Company Number: NZ-BAXTER-2009BH000582

PATIENT
  Age: 67 Year
  Sex: Female

DRUGS (4)
  1. METRONIDAZOLE [Suspect]
     Indication: PNEUMATOSIS INTESTINALIS
     Route: 065
     Dates: start: 20051101
  2. DOXYCYCLINE [Concomitant]
     Indication: PNEUMATOSIS INTESTINALIS
     Route: 065
  3. ROXITHROMYCIN [Concomitant]
     Indication: PNEUMATOSIS INTESTINALIS
     Route: 065
  4. AUGMENTIN '125' [Concomitant]
     Indication: PNEUMATOSIS INTESTINALIS
     Route: 065

REACTIONS (1)
  - OPTIC NEUROPATHY [None]
